FAERS Safety Report 21482053 (Version 1)
Quarter: 2022Q4

REPORT INFORMATION
  Report Type: Spontaneous
  Country: KR (occurrence: KR)
  Receive Date: 20221020
  Receipt Date: 20221020
  Transmission Date: 20230113
  Serious: Yes (Hospitalization, Other)
  Sender: FDA-Public Use
  Company Number: KR-MACLEODS PHARMACEUTICALS US LTD-MAC2022037831

PATIENT

DRUGS (11)
  1. TRIAMCINOLONE [Suspect]
     Active Substance: TRIAMCINOLONE
     Indication: Nerve block
     Dosage: 40 MG (ON DAY 1)
     Route: 065
  2. TRIAMCINOLONE [Suspect]
     Active Substance: TRIAMCINOLONE
     Indication: Nerve block
     Dosage: 20 MG (ON DAY 4)
     Route: 065
  3. TRIAMCINOLONE [Suspect]
     Active Substance: TRIAMCINOLONE
     Dosage: 20 MG (ONE WEEK AFTER DISCHARGE)
     Route: 008
  4. TRIAMCINOLONE [Suspect]
     Active Substance: TRIAMCINOLONE
     Dosage: 40 MG (ON DAY 7)
     Route: 065
  5. SODIUM CHLORIDE [Concomitant]
     Active Substance: SODIUM CHLORIDE
     Indication: Nerve block
     Dosage: UNK (5 ML)
     Route: 065
  6. SODIUM CHLORIDE [Concomitant]
     Active Substance: SODIUM CHLORIDE
     Indication: Adhesiolysis
     Dosage: UNK (8 ML)
     Route: 008
  7. SODIUM CHLORIDE [Concomitant]
     Active Substance: SODIUM CHLORIDE
     Dosage: UNK (10 ML DAILY, SODIUM CHLORIDE 3%)
     Route: 065
  8. LIDOCAINE [Concomitant]
     Active Substance: LIDOCAINE
     Indication: Nerve block
     Dosage: UNK (1 ML)
     Route: 008
  9. BUPIVACAINE [Concomitant]
     Active Substance: BUPIVACAINE
     Indication: Nerve block
     Dosage: UNK (1 ML)
     Route: 008
  10. Betadine (povidone-iodine) 10% solution [Concomitant]
     Indication: Infection prophylaxis
     Dosage: UNK
     Route: 065
  11. ALCOHOL [Concomitant]
     Active Substance: ALCOHOL
     Indication: Infection prophylaxis
     Dosage: UNK
     Route: 065

REACTIONS (4)
  - Extradural abscess [Recovering/Resolving]
  - Enterococcal infection [Recovering/Resolving]
  - Subcutaneous abscess [Recovering/Resolving]
  - Bone marrow oedema [Recovering/Resolving]
